FAERS Safety Report 7136976-1 (Version None)
Quarter: 2010Q4

REPORT INFORMATION
  Report Type: 
  Country: None (occurrence: None)
  Receive Date: 20101119
  Receipt Date: 20101110
  Transmission Date: 20110411
  Serious: Yes (Hospitalization)
  Sender: FDA-Public Use
  Company Number: 2010SP021252

PATIENT
  Age: 43 Year
  Sex: Female
  Weight: 33 kg

DRUGS (5)
  1. REMERON [Suspect]
     Indication: DEPRESSION
     Dosage: 15 MG;PO ; 45 MG;PO ; 30 MG;PO
     Route: 048
     Dates: start: 20100303, end: 20100311
  2. REMERON [Suspect]
     Indication: DEPRESSION
     Dosage: 15 MG;PO ; 45 MG;PO ; 30 MG;PO
     Route: 048
     Dates: start: 20100312, end: 20100329
  3. REMERON [Suspect]
     Indication: DEPRESSION
     Dosage: 15 MG;PO ; 45 MG;PO ; 30 MG;PO
     Route: 048
     Dates: start: 20100330, end: 20100401
  4. U PAN [Concomitant]
  5. SEROQUEL [Concomitant]

REACTIONS (19)
  - ABNORMAL BEHAVIOUR [None]
  - AUTONOMIC NEUROPATHY [None]
  - BRADYPHRENIA [None]
  - COMMUNICATION DISORDER [None]
  - CONFUSIONAL STATE [None]
  - DECREASED APPETITE [None]
  - DYSURIA [None]
  - EXCESSIVE EYE BLINKING [None]
  - HYPERREFLEXIA [None]
  - HYPERVIGILANCE [None]
  - HYPOPHAGIA [None]
  - INSOMNIA [None]
  - MENTAL STATUS CHANGES [None]
  - MUSCLE TIGHTNESS [None]
  - PYREXIA [None]
  - SEROTONIN SYNDROME [None]
  - SLOW RESPONSE TO STIMULI [None]
  - STUPOR [None]
  - TACHYCARDIA [None]
